FAERS Safety Report 4406035-7 (Version None)
Quarter: 2004Q3

REPORT INFORMATION
  Report Type: 
  Country: None (occurrence: None)
  Receive Date: 20040723
  Receipt Date: 20040325
  Transmission Date: 20050211
  Serious: No
  Sender: FDA-Public Use
  Company Number: US-GLAXOSMITHKLINE-A0504576A

PATIENT
  Age: 72 Year
  Sex: Female

DRUGS (4)
  1. AVANDIA [Suspect]
     Dosage: 4MG TWICE PER DAY
     Route: 048
  2. METFORMIN HCL [Concomitant]
  3. DYAZIDE [Concomitant]
  4. ZESTRIL [Concomitant]

REACTIONS (2)
  - FLATULENCE [None]
  - MUSCLE CRAMP [None]
